FAERS Safety Report 5104660-1 (Version None)
Quarter: 2006Q3

REPORT INFORMATION
  Report Type: 
  Country: None (occurrence: None)
  Receive Date: 20060911
  Receipt Date: 20060825
  Transmission Date: 20061208
  Serious: Yes (Other)
  Sender: FDA-Public Use
  Company Number: 2006-00950

PATIENT
  Age: 63 Year
  Sex: Male

DRUGS (10)
  1. VELCADE [Suspect]
     Indication: MULTIPLE MYELOMA
     Dosage: 1.30 MG/M2, INTRAVENOUS
     Route: 042
     Dates: start: 20051018, end: 20051223
  2. DOXORUBICIN HCL [Suspect]
     Indication: MULTIPLE SCLEROSIS
     Dosage: SEE IMAGE
     Route: 042
     Dates: start: 20051018, end: 20060304
  3. DEXAMETHASONE [Suspect]
     Indication: MULTIPLE MYELOMA
     Dosage: 40.00 MG, ORAL
     Route: 048
     Dates: start: 20051018, end: 20060304
  4. CYCLOPHOSPHAMIDE [Suspect]
     Indication: MULTIPLE MYELOMA
     Dosage: 1000.00 MG/M2, INTRAVENOUS
     Route: 042
     Dates: start: 20060301, end: 20060301
  5. NEUPOGEN [Suspect]
     Indication: MULTIPLE MYELOMA
     Dosage: 10.00 UG/KG, SUBCUTANEOUS
     Route: 058
  6. OMEPRAZOLE [Concomitant]
  7. OXYCONTIN [Concomitant]
  8. CIPROFLOXACIN [Concomitant]
  9. X-PRAEP (SENNOSIDE A+B CALCIUM) [Concomitant]
  10. G-CSF (GRANULOCYTE COLONY STIMULATING FACTOR) [Concomitant]

REACTIONS (1)
  - TRANSIENT ISCHAEMIC ATTACK [None]
